FAERS Safety Report 5583174-9 (Version None)
Quarter: 2008Q1

REPORT INFORMATION
  Report Type: 
  Country: None (occurrence: None)
  Receive Date: 20080103
  Receipt Date: 20080103
  Transmission Date: 20080703
  Serious: Yes (Hospitalization)
  Sender: FDA-Public Use
  Company Number: None

PATIENT
  Sex: Female
  Weight: 51 kg

DRUGS (2)
  1. SOLU-MEDROL [Suspect]
     Indication: ASTHMA
     Dosage: 125MG  1 TIME  IV BOLUS
     Route: 040
     Dates: start: 20071223, end: 20071223
  2. SOLU-MEDROL [Suspect]

REACTIONS (2)
  - ASTHMA [None]
  - RESPIRATORY FAILURE [None]
